FAERS Safety Report 25510931 (Version 2)
Quarter: 2025Q3

REPORT INFORMATION
  Report Type: Spontaneous
  Country: US (occurrence: US)
  Receive Date: 20250703
  Receipt Date: 20250711
  Transmission Date: 20251020
  Serious: No
  Sender: BAYER HEALTHCARE PHARMACEUTICALS INC.
  Company Number: US-BAYER-2025A087402

PATIENT
  Age: 20 Year
  Sex: Male

DRUGS (1)
  1. CIPROFLOXACIN [Suspect]
     Active Substance: CIPROFLOXACIN
     Indication: Lyme disease
     Dates: start: 202308, end: 202402

REACTIONS (9)
  - Increased tendency to bruise [None]
  - Gait disturbance [None]
  - Limb injury [None]
  - Depression [None]
  - Joint injury [None]
  - Ligament injury [None]
  - Ligament laxity [None]
  - Pain [None]
  - Pain [None]
